FAERS Safety Report 10083336 (Version 1)
Quarter: 2014Q2

REPORT INFORMATION
  Report Type: Spontaneous
  Country: US (occurrence: None)
  Receive Date: 20140415
  Receipt Date: 20140415
  Transmission Date: 20141212
  Serious: Yes (Other)
  Sender: FDA-Public Use
  Company Number: None

PATIENT
  Age: 24 Year
  Sex: Female
  Weight: 48.08 kg

DRUGS (2)
  1. RISPERDAL [Suspect]
     Indication: BIPOLAR I DISORDER
     Dosage: 1 TABLET
     Dates: start: 20131111, end: 20140227
  2. RISPERDAL [Suspect]
     Indication: PSYCHOTIC DISORDER
     Dosage: 1 TABLET
     Dates: start: 20131111, end: 20140227

REACTIONS (4)
  - Tardive dyskinesia [None]
  - Dysarthria [None]
  - Muscle rigidity [None]
  - Social problem [None]
